FAERS Safety Report 5966543-4 (Version None)
Quarter: 2008Q4

REPORT INFORMATION
  Report Type: 
  Country: None (occurrence: None)
  Receive Date: 20081125
  Receipt Date: 20081114
  Transmission Date: 20090506
  Serious: Yes (Death, Hospitalization)
  Sender: FDA-Public Use
  Company Number: US-GENENTECH-271982

PATIENT
  Sex: Female
  Weight: 51.3 kg

DRUGS (4)
  1. APOMAB (PRO95780) [Suspect]
     Indication: NON-SMALL CELL LUNG CANCER
     Dosage: 513 UNK, UNK
     Route: 042
     Dates: start: 20080222, end: 20081031
  2. BEVACIZUMAB [Suspect]
     Indication: NON-SMALL CELL LUNG CANCER
     Dosage: 784 UNK, UNK
     Route: 042
     Dates: start: 20080222, end: 20081031
  3. CARBOPLATIN [Suspect]
     Indication: NON-SMALL CELL LUNG CANCER
     Dosage: 420 MG, UNK
     Route: 042
     Dates: start: 20080222, end: 20080606
  4. PACLITAXEL [Suspect]
     Indication: NON-SMALL CELL LUNG CANCER
     Dosage: 250 MG, UNK
     Route: 042
     Dates: start: 20080222, end: 20080606

REACTIONS (1)
  - DEATH [None]
